FAERS Safety Report 6475897-4 (Version None)
Quarter: 2009Q4

REPORT INFORMATION
  Report Type: 
  Country: None (occurrence: None)
  Receive Date: 20091204
  Receipt Date: 20090107
  Transmission Date: 20100525
  Serious: No
  Sender: FDA-Public Use
  Company Number: US-AMGEN-KDL327352

PATIENT
  Sex: Female

DRUGS (4)
  1. ENBREL [Suspect]
     Indication: PSORIASIS
     Dates: start: 20040101
  2. SYNTHROID [Concomitant]
  3. PREMARIN [Concomitant]
  4. LEXAPRO [Concomitant]

REACTIONS (1)
  - HUMAN BITE [None]
